FAERS Safety Report 4264526-6 (Version None)
Quarter: 2004Q1

REPORT INFORMATION
  Report Type: 
  Country: None (occurrence: None)
  Receive Date: 20040102
  Receipt Date: 20031219
  Transmission Date: 20041129
  Serious: Yes (Hospitalization)
  Sender: FDA-Public Use
  Company Number: 2003126072

PATIENT
  Sex: Female

DRUGS (3)
  1. GEODON [Suspect]
     Indication: SCHIZOPHRENIA
     Dosage: 120 MG, (BID)
  2. CORTISONE (CORTISONE) [Suspect]
     Indication: PRURITUS
  3. ALL OTHER THERAPEUTIC PRODUCTS [Concomitant]

REACTIONS (2)
  - PRURITUS [None]
  - SCHIZOPHRENIA [None]
